FAERS Safety Report 5889666-7 (Version None)
Quarter: 2008Q3

REPORT INFORMATION
  Report Type: 
  Country: None (occurrence: None)
  Receive Date: 20080919
  Receipt Date: 20080910
  Transmission Date: 20090109
  Serious: Yes (Hospitalization)
  Sender: FDA-Public Use
  Company Number: FR-WYE-G02139908

PATIENT
  Sex: Male
  Weight: 77 kg

DRUGS (3)
  1. TORISEL [Suspect]
     Route: 042
     Dates: start: 20080717, end: 20080101
  2. INIPOMP [Suspect]
     Indication: ABDOMINAL PAIN UPPER
     Dosage: 20 MG; FREQUENCY UNSPECIFIED
     Route: 048
     Dates: start: 20080828
  3. AVASTIN [Suspect]
     Route: 042
     Dates: start: 20080717, end: 20080101

REACTIONS (1)
  - LIVER FUNCTION TEST ABNORMAL [None]
